FAERS Safety Report 13417699 (Version 1)
Quarter: 2017Q2

REPORT INFORMATION
  Report Type: Spontaneous
  Country: CN (occurrence: CN)
  Receive Date: 20170406
  Receipt Date: 20170406
  Transmission Date: 20170830
  Serious: Yes (Hospitalization, Other)
  Sender: FDA-Public Use
  Company Number: PHHY2017CN045235

PATIENT
  Age: 71 Year
  Sex: Male

DRUGS (1)
  1. VALSARTAN. [Suspect]
     Active Substance: VALSARTAN
     Indication: HYPERTENSION
     Route: 065

REACTIONS (23)
  - Decreased appetite [Unknown]
  - Cardiac disorder [Unknown]
  - Left atrial enlargement [Unknown]
  - Ventricular hypertrophy [Unknown]
  - Cholelithiasis [Unknown]
  - Chronic kidney disease [Unknown]
  - Diabetes mellitus [Unknown]
  - Blood glucose abnormal [Unknown]
  - Left ventricular dysfunction [Unknown]
  - Urine output decreased [Unknown]
  - Fatigue [Unknown]
  - Renal failure [Unknown]
  - Pericardial effusion [Unknown]
  - Peripheral artery stenosis [Unknown]
  - Blood creatinine increased [Unknown]
  - Productive cough [Unknown]
  - Cough [Unknown]
  - Aortic valve incompetence [Unknown]
  - Oedema peripheral [Recovering/Resolving]
  - Dyspnoea [Unknown]
  - Pleural effusion [Unknown]
  - Aortic calcification [Unknown]
  - Arteriosclerosis [Unknown]
